FAERS Safety Report 24313519 (Version 1)
Quarter: 2024Q3

REPORT INFORMATION
  Report Type: Spontaneous
  Country: ES (occurrence: ES)
  Receive Date: 20240912
  Receipt Date: 20240912
  Transmission Date: 20241017
  Serious: No
  Sender: MC2 Therapeutics
  Company Number: ES-MC2 Therapeutics, Ltd-2161500

PATIENT
  Age: 57 Year
  Sex: Male

DRUGS (2)
  1. WYNZORA [Suspect]
     Active Substance: BETAMETHASONE DIPROPIONATE\CALCIPOTRIENE
  2. BRODALUMAB [Suspect]
     Active Substance: BRODALUMAB

REACTIONS (2)
  - Product use issue [Recovered/Resolved]
  - Psoriasis [Recovered/Resolved]
